FAERS Safety Report 19260087 (Version 1)
Quarter: 2021Q2

REPORT INFORMATION
  Report Type: Spontaneous
  Country: US (occurrence: US)
  Receive Date: 20210514
  Receipt Date: 20210514
  Transmission Date: 20210717
  Serious: No
  Sender: FDA-Public Use
  Company Number: US-JAZZ-2021-US-001315

PATIENT
  Sex: Female

DRUGS (1)
  1. XYREM [Suspect]
     Active Substance: SODIUM OXYBATE
     Indication: INTENTIONAL PRODUCT MISUSE

REACTIONS (2)
  - Contraindicated product administered [Unknown]
  - Intentional product misuse [Unknown]

NARRATIVE: CASE EVENT DATE: 202012
